FAERS Safety Report 23028470 (Version 2)
Quarter: 2023Q4

REPORT INFORMATION
  Report Type: Report from Study
  Country: US (occurrence: US)
  Receive Date: 20231004
  Receipt Date: 20231024
  Transmission Date: 20240110
  Serious: Yes (Hospitalization, Other)
  Sender: FDA-Public Use
  Company Number: US-EXELIXIS-CABO-23066589

PATIENT
  Sex: Male

DRUGS (16)
  1. CABOMETYX [Suspect]
     Active Substance: CABOZANTINIB S-MALATE
     Indication: Renal cell carcinoma
     Dosage: 20 MG
     Dates: start: 202305
  2. CABOMETYX [Suspect]
     Active Substance: CABOZANTINIB S-MALATE
     Dosage: 40 MG, QD
  3. CABOMETYX [Suspect]
     Active Substance: CABOZANTINIB S-MALATE
     Dosage: 40 MG, QD
     Dates: start: 20230721
  4. AMIODARONE [Concomitant]
     Active Substance: AMIODARONE
  5. ATORVASTATIN [Concomitant]
     Active Substance: ATORVASTATIN
  6. FLONASE [Concomitant]
     Active Substance: FLUTICASONE PROPIONATE
  7. SPIRONOLACTONE [Concomitant]
     Active Substance: SPIRONOLACTONE
  8. FUROSEMIDE [Concomitant]
     Active Substance: FUROSEMIDE
  9. ELIQUIS [Concomitant]
     Active Substance: APIXABAN
  10. TYLENOL [Concomitant]
     Active Substance: ACETAMINOPHEN
  11. METOPROLOL SUCCINATE [Concomitant]
     Active Substance: METOPROLOL SUCCINATE
  12. OYSTER SHELL CALCIUM + D3 [Concomitant]
  13. PANTOPRAZOLE [Concomitant]
     Active Substance: PANTOPRAZOLE
  14. TRAMADOL [Concomitant]
     Active Substance: TRAMADOL\TRAMADOL HYDROCHLORIDE
  15. SUCRALFATE [Concomitant]
     Active Substance: SUCRALFATE
  16. TRAZODONE [Concomitant]
     Active Substance: TRAZODONE HYDROCHLORIDE

REACTIONS (7)
  - Neuropathy peripheral [Unknown]
  - Atrial fibrillation [Not Recovered/Not Resolved]
  - Gastrointestinal disorder [Recovering/Resolving]
  - Blood pressure increased [Recovering/Resolving]
  - Dyspnoea [Recovered/Resolved]
  - Impaired healing [Recovering/Resolving]
  - Myocardial fibrosis [Not Recovered/Not Resolved]
